FAERS Safety Report 4687989-0 (Version None)
Quarter: 2005Q2

REPORT INFORMATION
  Report Type: 
  Country: None (occurrence: None)
  Receive Date: 20050608
  Receipt Date: 20050527
  Transmission Date: 20051028
  Serious: Yes (Hospitalization, Other)
  Sender: FDA-Public Use
  Company Number: 2005081387

PATIENT
  Age: 70 Year
  Sex: Female
  Weight: 95.2554 kg

DRUGS (11)
  1. CELEBREX [Suspect]
     Indication: ARTHRITIS
     Dosage: (1 IN 1 D), ORAL
     Route: 048
  2. LOPRESSOR [Concomitant]
  3. WARFARIN SODIUM [Concomitant]
  4. PRAVACHOL [Concomitant]
  5. PLAVIX [Concomitant]
  6. NEURONTIN 9GABAPENTIN) [Concomitant]
  7. HYDROCHLOROTHIAZIDE [Concomitant]
  8. ALL OTHER THERAPEUTIC PRODUCTS (ALL OTHER THERAPEUTIC PRODUCTS) [Concomitant]
  9. CHOLESTEROL (CHOLESTEROL) [Concomitant]
  10. TIMOPTIC [Concomitant]
  11. LUMIGAN [Concomitant]

REACTIONS (4)
  - ATRIAL FIBRILLATION [None]
  - KNEE OPERATION [None]
  - PNEUMONIA [None]
  - RENAL IMPAIRMENT [None]
